FAERS Safety Report 9143615 (Version 1)
Quarter: 2013Q1

REPORT INFORMATION
  Report Type: Spontaneous
  Country: IT (occurrence: IT)
  Receive Date: 20130306
  Receipt Date: 20130306
  Transmission Date: 20140127
  Serious: Yes (Other)
  Sender: FDA-Public Use
  Company Number: IT-TEVA-389511ISR

PATIENT
  Age: 43 Year
  Sex: Female

DRUGS (1)
  1. FLUOXETINA [Suspect]
     Indication: DEPRESSION
     Dosage: 1 DOSAGE FORMS DAILY;
     Route: 048
     Dates: start: 20060101, end: 20060901

REACTIONS (1)
  - Colitis ulcerative [Not Recovered/Not Resolved]
